FAERS Safety Report 9885197 (Version 1)
Quarter: 2014Q1

REPORT INFORMATION
  Report Type: Spontaneous
  Country: US (occurrence: US)
  Receive Date: 20140210
  Receipt Date: 20140210
  Transmission Date: 20141002
  Serious: No
  Sender: FDA-Public Use
  Company Number: US-PFIZER INC-2014033593

PATIENT
  Sex: Female

DRUGS (2)
  1. EFFEXOR XR [Suspect]
     Indication: ANXIETY
     Dosage: 150 MG, 1X/DAY
     Route: 048
     Dates: start: 201312
  2. EFFEXOR [Suspect]
     Dosage: UNK

REACTIONS (7)
  - Bronchitis [Unknown]
  - Drug withdrawal syndrome [Unknown]
  - Crying [Unknown]
  - Malaise [Unknown]
  - Drug ineffective [Unknown]
  - Medication residue present [Unknown]
  - Product solubility abnormal [Unknown]
